FAERS Safety Report 7800352-6 (Version None)
Quarter: 2011Q4

REPORT INFORMATION
  Report Type: 
  Country: None (occurrence: None)
  Receive Date: 20111006
  Receipt Date: 20110929
  Transmission Date: 20120403
  Serious: Yes (Hospitalization)
  Sender: FDA-Public Use
  Company Number: US-VERTEX PHARMACEUTICALS INC.-AE-2011-001897

PATIENT
  Age: 43 Year
  Sex: Female

DRUGS (3)
  1. INCIVEK [Suspect]
     Indication: HEPATITIS C
     Dates: start: 20110801
  2. RIBAVIRIN [Concomitant]
     Indication: HEPATITIS C
     Dates: start: 20110801
  3. PEGINTERFERON [Concomitant]
     Indication: HEPATITIS C
     Dates: start: 20110801

REACTIONS (4)
  - TONGUE DISORDER [None]
  - NAUSEA [None]
  - HEADACHE [None]
  - FACIAL ASYMMETRY [None]
